FAERS Safety Report 4931685-9 (Version None)
Quarter: 2006Q1

REPORT INFORMATION
  Report Type: 
  Country: None (occurrence: None)
  Receive Date: 20060303
  Receipt Date: 20060117
  Transmission Date: 20060701
  Serious: No
  Sender: FDA-Public Use
  Company Number: US-BRISTOL-MYERS SQUIBB COMPANY-13249867

PATIENT
  Age: 53 Year
  Sex: Female

DRUGS (4)
  1. ERBITUX [Suspect]
     Indication: COLORECTAL CANCER METASTATIC
  2. ERBITUX [Suspect]
     Indication: COLORECTAL CANCER RECURRENT
  3. IRINOTECAN HCL [Concomitant]
  4. BENADRYL [Concomitant]
     Indication: PREMEDICATION

REACTIONS (2)
  - NEPHROLITHIASIS [None]
  - RASH [None]
